FAERS Safety Report 12555586 (Version 2)
Quarter: 2016Q3

REPORT INFORMATION
  Report Type: Spontaneous
  Country: JP (occurrence: JP)
  Receive Date: 20160714
  Receipt Date: 20160728
  Transmission Date: 20161109
  Serious: Yes (Death, Hospitalization, Other)
  Sender: FDA-Public Use
  Company Number: PHJP2016JP019615

PATIENT
  Age: 44 Year
  Sex: Male

DRUGS (1)
  1. FARYDAK [Suspect]
     Active Substance: PANOBINOSTAT
     Indication: PLASMA CELL MYELOMA
     Dosage: UNK
     Route: 048
     Dates: start: 20160210, end: 20160501

REACTIONS (10)
  - Pneumonia [Fatal]
  - Platelet count decreased [Unknown]
  - White blood cell count decreased [Unknown]
  - Blood calcium increased [Unknown]
  - Condition aggravated [Unknown]
  - Creatinine renal clearance abnormal [Unknown]
  - Malaise [Unknown]
  - Diarrhoea [Unknown]
  - Blood creatinine increased [Unknown]
  - Bone swelling [Unknown]

NARRATIVE: CASE EVENT DATE: 20160509
